FAERS Safety Report 6774843-3 (Version None)
Quarter: 2010Q2

REPORT INFORMATION
  Report Type: 
  Country: None (occurrence: None)
  Receive Date: 20100617
  Receipt Date: 20100607
  Transmission Date: 20101027
  Serious: Yes (Other)
  Sender: FDA-Public Use
  Company Number: HR-WYE-H15613410

PATIENT
  Age: 80 Year
  Sex: Male

DRUGS (8)
  1. CONTROLOC [Suspect]
     Indication: GASTROOESOPHAGEAL REFLUX DISEASE
     Route: 048
     Dates: start: 20050101, end: 20100401
  2. LISINOPRIL [Concomitant]
     Indication: HYPERTENSION
     Dosage: UNKNOWN
  3. FLUTICASONE [Concomitant]
     Indication: HYPERSENSITIVITY
     Dosage: UNKNOWN
  4. SIMVASTATIN [Concomitant]
     Indication: HYPERLIPIDAEMIA
     Dosage: UNKNOWN
  5. LEVOTHYROXINE SODIUM [Concomitant]
     Indication: HYPOTHYROIDISM
     Dosage: UNKNOWN
  6. MEBEVERINE [Concomitant]
     Dosage: UNKNOWN
  7. BISOPROLOL [Concomitant]
     Indication: HYPERTENSION
     Dosage: UNKNOWN
  8. DOXAZOSIN MESYLATE [Concomitant]
     Indication: PROSTATIC ADENOMA
     Dosage: UNKNOWN

REACTIONS (1)
  - OESOPHAGEAL CANDIDIASIS [None]
